FAERS Safety Report 20538755 (Version 1)
Quarter: 2022Q1

REPORT INFORMATION
  Report Type: Spontaneous
  Country: GB (occurrence: GB)
  Receive Date: 20220302
  Receipt Date: 20220302
  Transmission Date: 20220423
  Serious: Yes (Hospitalization, Disabling)
  Sender: FDA-Public Use
  Company Number: None

PATIENT
  Age: 73 Year
  Sex: Male

DRUGS (4)
  1. PALIPERIDONE PALMITATE [Suspect]
     Active Substance: PALIPERIDONE PALMITATE
     Indication: Schizophrenia
     Dosage: 100MG TEST DOSE, 2 FURTHER 100MG PER MONTH
     Route: 030
     Dates: start: 20210303
  2. PALIPERIDONE PALMITATE [Suspect]
     Active Substance: PALIPERIDONE PALMITATE
     Route: 030
     Dates: end: 20210509
  3. PALIPERIDONE PALMITATE [Suspect]
     Active Substance: PALIPERIDONE PALMITATE
  4. MIRTAZAPINE [Concomitant]
     Active Substance: MIRTAZAPINE
     Route: 065

REACTIONS (1)
  - Myelopathy [Recovered/Resolved with Sequelae]

NARRATIVE: CASE EVENT DATE: 20210501
